FAERS Safety Report 6525274-2 (Version None)
Quarter: 2010Q1

REPORT INFORMATION
  Report Type: 
  Country: None (occurrence: None)
  Receive Date: 20100104
  Receipt Date: 20091222
  Transmission Date: 20100710
  Serious: Yes (Other)
  Sender: FDA-Public Use
  Company Number: US-PFIZER INC-2008042637

PATIENT
  Sex: Male
  Weight: 65.76 kg

DRUGS (7)
  1. NEURONTIN [Suspect]
     Indication: PAIN
     Dosage: UNK
  2. LYRICA [Suspect]
     Indication: PAIN
     Dosage: UNK
     Route: 048
     Dates: start: 20060301, end: 20060501
  3. LYRICA [Suspect]
     Indication: FIBROMYALGIA
  4. XANAX [Suspect]
     Indication: MUSCLE SPASMS
     Dosage: UNK
     Dates: start: 20060601
  5. XANAX [Suspect]
     Indication: PSYCHOMOTOR HYPERACTIVITY
  6. PRILOSEC [Concomitant]
     Dosage: UNK
  7. SYNTHROID [Concomitant]
     Dosage: UNK

REACTIONS (26)
  - ANGER [None]
  - ARTHROPATHY [None]
  - ASTHMA [None]
  - ATAXIA [None]
  - CONVULSION [None]
  - COORDINATION ABNORMAL [None]
  - DIARRHOEA [None]
  - FEELING ABNORMAL [None]
  - FEELING JITTERY [None]
  - FIBROMYALGIA [None]
  - GAIT DISTURBANCE [None]
  - ILL-DEFINED DISORDER [None]
  - IMPAIRED DRIVING ABILITY [None]
  - INSOMNIA [None]
  - IRRITABILITY [None]
  - MEMORY IMPAIRMENT [None]
  - MUSCLE SPASMS [None]
  - PAIN IN EXTREMITY [None]
  - POST-TRAUMATIC STRESS DISORDER [None]
  - PSYCHOMOTOR HYPERACTIVITY [None]
  - SOMNOLENCE [None]
  - SPEECH DISORDER [None]
  - STRESS [None]
  - VISUAL IMPAIRMENT [None]
  - VOMITING [None]
  - WITHDRAWAL SYNDROME [None]
